FAERS Safety Report 12285134 (Version 4)
Quarter: 2024Q4

REPORT INFORMATION
  Report Type: Spontaneous
  Country: DE (occurrence: DE)
  Receive Date: 20160420
  Receipt Date: 20241122
  Transmission Date: 20250114
  Serious: Yes (Life-Threatening, Hospitalization, Other)
  Sender: ACCORD
  Company Number: None

PATIENT
  Age: 56 Year
  Sex: Female

DRUGS (7)
  1. DOCETAXEL [Suspect]
     Active Substance: DOCETAXEL
     Indication: Bronchial carcinoma
     Route: 042
     Dates: start: 20160323
  2. NINTEDANIB [Suspect]
     Active Substance: NINTEDANIB
     Indication: Bronchial carcinoma
     Dosage: DAILY DOSE: 400 MG MILLGRAM(S) EVERY DAYS
     Route: 048
     Dates: start: 20160203, end: 20160222
  3. ZOLEDRONIC ACID [Concomitant]
     Active Substance: ZOLEDRONIC ACID
     Indication: Bronchial carcinoma
     Route: 042
  4. LEVOTHYROXINE SODIUM [Concomitant]
     Active Substance: LEVOTHYROXINE SODIUM
     Indication: Hypothyroidism
     Dosage: DAILY DOSE: 125 UG MICROGRAM(S) EVERY DAYS
     Route: 048
  5. DOCETAXEL [Suspect]
     Active Substance: DOCETAXEL
     Indication: Bronchial carcinoma
     Route: 042
     Dates: start: 20160223
  6. DOCETAXEL [Suspect]
     Active Substance: DOCETAXEL
     Indication: Bronchial carcinoma
     Route: 042
  7. NINTEDANIB [Suspect]
     Active Substance: NINTEDANIB
     Indication: Bronchial carcinoma
     Dosage: 400 MILLIGRAM DAILY, WAS TREATED FOR 20 DAYS

REACTIONS (3)
  - Intestinal ischaemia [Unknown]
  - Intestinal haemorrhage [Unknown]
  - Gastrointestinal necrosis [Unknown]
